FAERS Safety Report 6046148-X (Version None)
Quarter: 2009Q1

REPORT INFORMATION
  Report Type: 
  Country: None (occurrence: None)
  Receive Date: 20090121
  Receipt Date: 20090121
  Transmission Date: 20090719
  Serious: Yes (Hospitalization, Other)
  Sender: FDA-Public Use
  Company Number: None

PATIENT
  Age: 21 Year
  Sex: Female
  Weight: 72.5755 kg

DRUGS (2)
  1. NUVARING [Suspect]
     Indication: CONTRACEPTION
     Dosage: 0.03 MG EVERY 3 WKS VAG
     Route: 067
  2. NUVARING [Suspect]
     Indication: ENDOMETRIOSIS
     Dosage: 0.03 MG EVERY 3 WKS VAG
     Route: 067

REACTIONS (15)
  - ACTIVITIES OF DAILY LIVING IMPAIRED [None]
  - ANOREXIA [None]
  - BREAST PAIN [None]
  - CRYING [None]
  - DIARRHOEA [None]
  - ECONOMIC PROBLEM [None]
  - FEAR [None]
  - FEELING ABNORMAL [None]
  - HEADACHE [None]
  - IMPAIRED WORK ABILITY [None]
  - IUCD COMPLICATION [None]
  - MALAISE [None]
  - NAUSEA [None]
  - PROGESTERONE INCREASED [None]
  - WEIGHT DECREASED [None]
